FAERS Safety Report 9470668 (Version 1)
Quarter: 2013Q3

REPORT INFORMATION
  Report Type: Spontaneous
  Country: US (occurrence: US)
  Receive Date: 20130822
  Receipt Date: 20130822
  Transmission Date: 20140515
  Serious: No
  Sender: FDA-Public Use
  Company Number: US-PFIZER INC-2013241965

PATIENT
  Sex: 0

DRUGS (4)
  1. DILANTIN-125 [Suspect]
     Dosage: UNK
  2. TRILEPTAL [Suspect]
     Dosage: UNK
  3. LAMICTAL [Suspect]
     Dosage: UNK
  4. VIMPAT [Suspect]
     Dosage: UNK

REACTIONS (1)
  - Contusion [Unknown]
